FAERS Safety Report 8340551 (Version 3)
Quarter: 2014Q2

REPORT INFORMATION
  Report Type: Report from Study
  Country: US (occurrence: US)
  Receive Date: 20120117
  Receipt Date: 20140530
  Transmission Date: 20141212
  Serious: Yes (Other)
  Sender: FDA-Public Use
  Company Number: US-ROCHE-1029393

PATIENT
  Sex: Female

DRUGS (2)
  1. BEVACIZUMAB [Suspect]
     Indication: BREAST CANCER METASTATIC
     Route: 042
  2. DOCETAXEL [Suspect]
     Indication: BREAST CANCER METASTATIC
     Route: 042

REACTIONS (15)
  - Febrile neutropenia [Unknown]
  - Mucosal inflammation [Unknown]
  - Rectal abscess [Unknown]
  - Ataxia [Unknown]
  - Renal failure acute [Unknown]
  - Dehydration [Unknown]
  - Fatigue [Unknown]
  - Diarrhoea [Unknown]
  - Nail disorder [Unknown]
  - Constipation [Unknown]
  - Arthralgia [Unknown]
  - Vomiting [Unknown]
  - Bone pain [Unknown]
  - Hypertension [Unknown]
  - Neutropenia [Unknown]
